FAERS Safety Report 23685275 (Version 1)
Quarter: 2024Q1

REPORT INFORMATION
  Report Type: Spontaneous
  Country: US (occurrence: US)
  Receive Date: 20240329
  Receipt Date: 20240329
  Transmission Date: 20240410
  Serious: Yes (Hospitalization, Other)
  Sender: FDA-Public Use
  Company Number: US-NOVOPROD-1193656

PATIENT
  Age: 64 Year
  Sex: Male

DRUGS (1)
  1. OZEMPIC [Suspect]
     Active Substance: SEMAGLUTIDE
     Indication: Diabetes mellitus
     Dosage: 1MG
     Route: 058
     Dates: start: 20230612

REACTIONS (2)
  - Cholelithiasis [Recovering/Resolving]
  - Cholecystitis infective [Recovering/Resolving]

NARRATIVE: CASE EVENT DATE: 20230101
